FAERS Safety Report 9563116 (Version 1)
Quarter: 2013Q3

REPORT INFORMATION
  Report Type: Spontaneous
  Country: US (occurrence: US)
  Receive Date: 20130927
  Receipt Date: 20130927
  Transmission Date: 20140515
  Serious: No
  Sender: FDA-Public Use
  Company Number: US-BRISTOL-MYERS SQUIBB COMPANY-17192485

PATIENT
  Age: 59 Year
  Sex: Female

DRUGS (20)
  1. ONGLYZA TABS 5 MG [Suspect]
     Route: 048
  2. GLIPIZIDE [Concomitant]
     Dosage: TAB.
     Route: 048
  3. PROVENTIL INHALER [Concomitant]
     Indication: WHEEZING
     Dosage: 1 DOSAGE FORM- 90MCG/ ACTUATION SPRAY;2PUFFS AS NEEDED EVERY 4 TO 6 HRS.
     Route: 045
  4. NASONEX [Concomitant]
     Dosage: 1 DOSAGE FORM- 50MCG/ ACTUATION SPRAY; 2 SPARYS BY 2 TIMES PER DAY.
     Route: 045
  5. LORATADINE [Concomitant]
     Dosage: TAB.
     Route: 048
  6. ALBUTEROL SULFATE [Concomitant]
     Indication: COUGH
     Dosage: 1 DOSAGE FORM- 90MCG/ ACTUATION SPRAY;2PUFFS AS NEEDED EVERY 4 TO 6 HRS.
     Route: 045
  7. ERYTHROMYCIN [Concomitant]
     Dosage: 1 DOSAGE FORM- 5MG/GRAM(0.5%).
     Route: 047
  8. SYNTHROID [Concomitant]
     Dosage: TAB.
     Route: 048
  9. ENALAPRIL [Concomitant]
     Indication: BLOOD PRESSURE
     Dosage: TAB.
     Route: 048
  10. ELIDEL [Concomitant]
     Dosage: 1 DOSAGE FORM-1% CREAM.
     Route: 061
  11. CELEBREX [Concomitant]
     Dosage: CAP.
     Route: 048
  12. ONGLYZA TABS 5 MG [Concomitant]
     Route: 048
  13. ROBITUSSIN AC [Concomitant]
     Indication: RESPIRATORY TRACT CONGESTION
     Dosage: 1 DOSAGE FORM- 10MG-100MG/5ML; 5-10ML EVERY 4 TO 6 HRS.
     Route: 048
  14. CRESTOR [Concomitant]
     Dosage: TAB.
     Route: 048
  15. METFORMIN [Concomitant]
     Dosage: TAB.
     Route: 048
  16. NASONEX [Concomitant]
     Dosage: 2 SPRAYS IN 2 TIMES A DAY.
     Route: 045
  17. MECLIZINE [Concomitant]
     Indication: DIZZINESS
     Dosage: TAB.
     Route: 048
  18. COLACE CAPS 100 MG [Concomitant]
     Dosage: 1CAPS TO 2CAPS.
     Route: 048
  19. IBUPROFEN [Concomitant]
     Indication: PAIN
     Dosage: 1 TABS FOR EVERY 6 HRS.
     Route: 048
  20. SPECTAZOLE [Concomitant]
     Dosage: 1 DOSAGE FORM- 1% CREAM.
     Route: 061

REACTIONS (1)
  - Swelling [Unknown]
